FAERS Safety Report 9405959 (Version 2)
Quarter: 2013Q3

REPORT INFORMATION
  Report Type: Spontaneous
  Country: LU (occurrence: LU)
  Receive Date: 20130717
  Receipt Date: 20130808
  Transmission Date: 20140515
  Serious: Yes (Life-Threatening)
  Sender: FDA-Public Use
  Company Number: LU-GLAXOSMITHKLINE-B0908122A

PATIENT
  Age: 25 Year
  Sex: Female

DRUGS (2)
  1. ZELITREX [Suspect]
     Indication: HERPES OPHTHALMIC
     Dosage: 500MG TWICE PER DAY
     Route: 065
     Dates: start: 20130709, end: 20130710
  2. MESTINON [Concomitant]
     Indication: MUSCULAR WEAKNESS
     Dosage: 5TAB PER DAY
     Dates: start: 2008

REACTIONS (2)
  - Asthma [Recovered/Resolved]
  - Dyspnoea [Recovered/Resolved]
